FAERS Safety Report 24591783 (Version 1)
Quarter: 2024Q4

REPORT INFORMATION
  Report Type: Other
  Country: PT (occurrence: PT)
  Receive Date: 20241108
  Receipt Date: 20241108
  Transmission Date: 20250115
  Serious: Yes (Other)
  Sender: MERCK KGAA
  Company Number: PT-Merck Healthcare KGaA-2024058152

PATIENT
  Age: 16 Year
  Sex: Female

DRUGS (4)
  1. LEVOTHYROXINE [Suspect]
     Active Substance: LEVOTHYROXINE
     Indication: Hypothyroidism
  2. IRON [Concomitant]
     Active Substance: IRON
     Indication: Iron deficiency anaemia
  3. HYDROCORTISONE [Concomitant]
     Active Substance: HYDROCORTISONE
     Indication: Polyglandular autoimmune syndrome type II
  4. FLUDROCORTISONE [Concomitant]
     Active Substance: FLUDROCORTISONE
     Indication: Polyglandular autoimmune syndrome type II

REACTIONS (2)
  - Adrenocortical insufficiency acute [Unknown]
  - Contraindicated product administered [Unknown]
